FAERS Safety Report 4744358-2 (Version None)
Quarter: 2005Q3

REPORT INFORMATION
  Report Type: 
  Country: None (occurrence: None)
  Receive Date: 20050812
  Receipt Date: 20050518
  Transmission Date: 20060218
  Serious: Yes (Hospitalization, Disabling, Other)
  Sender: FDA-Public Use
  Company Number: US-MERCK-0505USA02258

PATIENT
  Age: 58 Year
  Sex: Male
  Weight: 105 kg

DRUGS (5)
  1. VIOXX [Suspect]
     Indication: OSTEOARTHRITIS
     Route: 048
     Dates: start: 20011016, end: 20030603
  2. PAXIL [Concomitant]
     Route: 065
  3. PROZAC [Concomitant]
     Route: 065
  4. GLUCOPHAGE [Concomitant]
     Route: 065
  5. EFFEXOR XR [Concomitant]
     Route: 065

REACTIONS (11)
  - BLOOD CHOLESTEROL INCREASED [None]
  - BLOOD TRIGLYCERIDES INCREASED [None]
  - CARDIAC DISORDER [None]
  - CHRONIC OBSTRUCTIVE PULMONARY DISEASE [None]
  - DIABETES MELLITUS [None]
  - GASTROOESOPHAGEAL REFLUX DISEASE [None]
  - HYPERTENSION [None]
  - JOINT INJURY [None]
  - MUSCLE INJURY [None]
  - MYOCARDIAL INFARCTION [None]
  - OEDEMA PERIPHERAL [None]
